FAERS Safety Report 5670232-3 (Version None)
Quarter: 2008Q1

REPORT INFORMATION
  Report Type: 
  Country: None (occurrence: None)
  Receive Date: 20080318
  Receipt Date: 20080306
  Transmission Date: 20080703
  Serious: Yes (Hospitalization)
  Sender: FDA-Public Use
  Company Number: GB-RANBAXY-2008RR-13598

PATIENT

DRUGS (5)
  1. ACETAMINOPHEN [Suspect]
     Dosage: 16-62 G
     Route: 048
  2. CYCLOSPORINE [Concomitant]
     Indication: IMMUNOSUPPRESSION
  3. TACROLIMUS [Concomitant]
     Indication: IMMUNOSUPPRESSION
  4. AZATHIOPRINE [Concomitant]
     Indication: IMMUNOSUPPRESSION
  5. MYCOPHENOLATE MOFETIL [Concomitant]
     Indication: IMMUNOSUPPRESSION

REACTIONS (11)
  - ACUTE HEPATIC FAILURE [None]
  - GRAFT DYSFUNCTION [None]
  - HEPATIC VEIN THROMBOSIS [None]
  - IMPAIRED HEALING [None]
  - OVERDOSE [None]
  - PLEURAL EFFUSION [None]
  - PULMONARY EMBOLISM [None]
  - PULMONARY SEPSIS [None]
  - RENAL FAILURE [None]
  - SINUS DISORDER [None]
  - VENOOCCLUSIVE LIVER DISEASE [None]
